FAERS Safety Report 6419298-3 (Version None)
Quarter: 2009Q4

REPORT INFORMATION
  Report Type: 
  Country: None (occurrence: None)
  Receive Date: 20091029
  Receipt Date: 20091026
  Transmission Date: 20100525
  Serious: Yes (Hospitalization)
  Sender: FDA-Public Use
  Company Number: US-BRISTOL-MYERS SQUIBB COMPANY-14832166

PATIENT
  Age: 62 Year
  Sex: Male
  Weight: 84 kg

DRUGS (3)
  1. CETUXIMAB [Suspect]
     Indication: HEAD AND NECK CANCER
     Dosage: ALSO TAKEN :250 MG/M2
     Route: 042
     Dates: start: 20090928
  2. CISPLATIN [Suspect]
     Indication: HEAD AND NECK CANCER
     Route: 042
     Dates: start: 20090914
  3. RADIOTHERAPY [Suspect]
     Indication: HEAD AND NECK CANCER

REACTIONS (4)
  - DELIRIUM [None]
  - MUCOSAL INFLAMMATION [None]
  - PYREXIA [None]
  - VOMITING [None]
